FAERS Safety Report 8026891 (Version 23)
Quarter: 2013Q1

REPORT INFORMATION
  Report Type: Report from Study
  Country: JP (occurrence: JP)
  Receive Date: 20110708
  Receipt Date: 20130329
  Transmission Date: 20140127
  Serious: Yes (Hospitalization, Other)
  Sender: FDA-Public Use
  Company Number: JP-UCBSA-036453

PATIENT
  Age: 49 Year
  Sex: Female
  Weight: 85.5 kg

DRUGS (13)
  1. CERTOLIZUMAB PEGOL [Suspect]
     Indication: RHEUMATOID ARTHRITIS
     Dosage: IN STUDY 275-08-003, SUBJECT RECEIVED- 400 MG/2 WEEKS AND 200 MG/2 WEEKS
     Route: 058
     Dates: start: 20090820, end: 20110624
  2. CERTOLIZUMAB PEGOL [Suspect]
     Indication: RHEUMATOID ARTHRITIS
     Route: 058
     Dates: start: 2009, end: 20090804
  3. CERTOLIZUMAB PEGOL [Suspect]
     Indication: RHEUMATOID ARTHRITIS
     Route: 058
     Dates: start: 20090205, end: 2009
  4. FUROSEMIDE [Concomitant]
     Indication: OEDEMA PERIPHERAL
     Dosage: DAILY DOSE:20 MG
     Route: 048
     Dates: start: 20100819, end: 20110907
  5. PREDNISOLONE [Concomitant]
     Indication: RHEUMATOID ARTHRITIS
     Dosage: DAILY DOSE: 6 MG
     Route: 048
     Dates: start: 20110217
  6. LAFUTIDINE [Concomitant]
     Indication: GASTRITIS PROPHYLAXIS
     Dosage: DAILY DOSE: 10MG
     Dates: start: 20110319
  7. TACROLIMUS HYDRATE [Concomitant]
     Indication: RHEUMATOID ARTHRITIS
     Dosage: DAILY DOSE:2 MG
     Route: 048
     Dates: start: 20100819, end: 20110907
  8. SODIUM GUALENATE HYDRTATE_L-GLUTAMINE [Concomitant]
     Indication: GASTRITIS PROPHYLAXIS
     Dosage: DAILY DOSE:1 MG
     Route: 048
     Dates: start: 20100219
  9. FERRIC PYROPHOSPHATE [Concomitant]
     Indication: IRON DEFICIENCY ANAEMIA
     Dosage: DAILY DOSE:15ML; SOLUBLE
     Dates: start: 20100625
  10. LOXOPROFEN SODIUM HYDRATE [Concomitant]
     Indication: RHEUMATOID ARTHRITIS
     Dosage: DAILY DOSE : 180 MG
     Dates: start: 20100709
  11. KETOPROFEN [Concomitant]
     Indication: RHEUMATOID ARTHRITIS
     Dosage: DAILY DOSE: ADEQUATE DOSE AS NEEDED
     Dates: start: 20100512
  12. FERRIC OXIDE, SACCHARATED [Concomitant]
     Indication: IRON DEFICIENCY ANAEMIA
     Dosage: 80 MG/WEEK
     Dates: start: 20090416
  13. ISOTONIC SODIUM CHLORIDE SOLUTION [Concomitant]
     Dosage: 20 ML/WEEK
     Dates: start: 20090416

REACTIONS (1)
  - Invasive ductal breast carcinoma [Recovered/Resolved]
